FAERS Safety Report 12152758 (Version 5)
Quarter: 2020Q1

REPORT INFORMATION
  Report Type: Report from Study
  Country: US (occurrence: US)
  Receive Date: 20160304
  Receipt Date: 20200311
  Transmission Date: 20200409
  Serious: Yes (Hospitalization)
  Sender: FDA-Public Use
  Company Number: US-ACTELION-A-US2015-119042

PATIENT
  Age: 74 Year
  Sex: Male
  Weight: 102.95 kg

DRUGS (3)
  1. VENTAVIS [Suspect]
     Active Substance: ILOPROST
     Dosage: 5 MCG, 6-9 TIMES A DAY
     Route: 055
  2. VENTAVIS [Suspect]
     Active Substance: ILOPROST
     Indication: PULMONARY ARTERIAL HYPERTENSION
     Dosage: 2.5 MCG, 6-9 X/DAY
     Route: 055
     Dates: start: 20150430
  3. ELIQUIS [Concomitant]
     Active Substance: APIXABAN

REACTIONS (15)
  - Blood pressure decreased [Unknown]
  - Dyspnoea [Unknown]
  - Chest discomfort [Unknown]
  - Cough [Unknown]
  - Myalgia [Unknown]
  - Neuropathy peripheral [Unknown]
  - Chest pain [Unknown]
  - Cataract operation [Unknown]
  - Scrotal swelling [Unknown]
  - Pain in jaw [Unknown]
  - Headache [Unknown]
  - Eye irritation [Unknown]
  - Heart rate irregular [Unknown]
  - Oedema peripheral [Unknown]
  - Heart rate decreased [Unknown]

NARRATIVE: CASE EVENT DATE: 20200224
